FAERS Safety Report 8831466 (Version 3)
Quarter: 2013Q2

REPORT INFORMATION
  Report Type: Spontaneous
  Country: US (occurrence: US)
  Receive Date: 20121008
  Receipt Date: 20130624
  Transmission Date: 20140414
  Serious: Yes (Hospitalization)
  Sender: FDA-Public Use
  Company Number: US-GLAXOSMITHKLINE-A0990334A

PATIENT
  Age: 50 Year
  Sex: Female

DRUGS (1)
  1. FLOLAN [Suspect]
     Indication: PULMONARY ARTERIAL HYPERTENSION
     Dosage: 15NGKM CONTINUOUS
     Route: 065
     Dates: start: 20091209

REACTIONS (7)
  - Catheter site discharge [Unknown]
  - Pyrexia [Unknown]
  - Catheter site infection [Unknown]
  - Lung disorder [Unknown]
  - Pneumonia [Unknown]
  - Diarrhoea [Unknown]
  - Pain in jaw [Unknown]
